FAERS Safety Report 6794506-8 (Version None)
Quarter: 2010Q2

REPORT INFORMATION
  Report Type: 
  Country: None (occurrence: None)
  Receive Date: 20100625
  Receipt Date: 20100615
  Transmission Date: 20101027
  Serious: Yes (Other)
  Sender: FDA-Public Use
  Company Number: ES-PFIZER INC-2010075044

PATIENT
  Age: 58 Year
  Sex: Female

DRUGS (1)
  1. NEURONTIN [Suspect]
     Indication: INTERVERTEBRAL DISC PROTRUSION
     Dosage: 1200 MG, 1X/DAY
     Route: 048
     Dates: start: 20100101, end: 20100311

REACTIONS (4)
  - DIZZINESS [None]
  - HEADACHE [None]
  - REFLEXES ABNORMAL [None]
  - SYNCOPE [None]
